FAERS Safety Report 14927655 (Version 2)
Quarter: 2018Q2

REPORT INFORMATION
  Report Type: Spontaneous
  Country: US (occurrence: US)
  Receive Date: 20180523
  Receipt Date: 20180530
  Transmission Date: 20180711
  Serious: No
  Sender: FDA-Public Use
  Company Number: US-BAYER-2018-089946

PATIENT
  Age: 3 Year
  Sex: Female

DRUGS (1)
  1. MIRALAX [Suspect]
     Active Substance: POLYETHYLENE GLYCOL 3350
     Dosage: 1 CAPFULL DAILY
     Dates: start: 2017

REACTIONS (2)
  - Thumb sucking [Recovering/Resolving]
  - Onychophagia [Recovering/Resolving]

NARRATIVE: CASE EVENT DATE: 201711
